FAERS Safety Report 6376737-4 (Version None)
Quarter: 2009Q3

REPORT INFORMATION
  Report Type: 
  Country: None (occurrence: None)
  Receive Date: 20090924
  Receipt Date: 20090924
  Transmission Date: 20100115
  Serious: No
  Sender: FDA-Public Use
  Company Number: None

PATIENT

DRUGS (1)
  1. CRESTOR [Suspect]
     Dosage: 40 MG 1 DAILY
     Dates: start: 20060101, end: 20090101

REACTIONS (3)
  - INFLUENZA [None]
  - MYALGIA [None]
  - PAIN IN EXTREMITY [None]
